FAERS Safety Report 4669717-8 (Version None)
Quarter: 2005Q2

REPORT INFORMATION
  Report Type: 
  Country: None (occurrence: None)
  Receive Date: 20050520
  Receipt Date: 20050511
  Transmission Date: 20051028
  Serious: Yes (Other)
  Sender: FDA-Public Use
  Company Number: 05-05-0826

PATIENT
  Age: 70 Year
  Sex: Female

DRUGS (4)
  1. TAMOXIFEN CITRATE [Suspect]
     Indication: BREAST CANCER
     Dosage: 20MG ORAL
     Route: 048
     Dates: start: 20020101, end: 20050301
  2. ATORVASTATIN CALCIUM [Concomitant]
  3. DOMPERIDONE [Concomitant]
  4. ASPIRIN [Concomitant]

REACTIONS (3)
  - CONDITION AGGRAVATED [None]
  - INAPPROPRIATE ANTIDIURETIC HORMONE SECRETION [None]
  - NEOPLASM MALIGNANT [None]
